FAERS Safety Report 5885559-X (Version None)
Quarter: 2008Q3

REPORT INFORMATION
  Report Type: 
  Country: None (occurrence: None)
  Receive Date: 20080916
  Receipt Date: 20080904
  Transmission Date: 20090109
  Serious: No
  Sender: FDA-Public Use
  Company Number: US-B.I. PHARMACEUTICALS,INC./RIDGEFIELD-2008-BP-14020BP

PATIENT
  Sex: Female

DRUGS (4)
  1. SPIRIVA [Suspect]
     Indication: CHRONIC OBSTRUCTIVE PULMONARY DISEASE
     Dosage: 18MCG
     Route: 055
     Dates: start: 20080201
  2. ADVAIR DISKUS 100/50 [Suspect]
     Indication: CHRONIC OBSTRUCTIVE PULMONARY DISEASE
  3. CHANTIX [Concomitant]
     Indication: SMOKING CESSATION THERAPY
     Dates: start: 20080201, end: 20080301
  4. NICOTINE [Concomitant]
     Indication: SMOKING CESSATION THERAPY
     Route: 062
     Dates: start: 20080401, end: 20080401

REACTIONS (5)
  - EYE DISORDER [None]
  - FUNGAL INFECTION [None]
  - NASAL SEPTUM DEVIATION [None]
  - SINUS DISORDER [None]
  - VISION BLURRED [None]
